FAERS Safety Report 7765362-6 (Version None)
Quarter: 2011Q3

REPORT INFORMATION
  Report Type: 
  Country: None (occurrence: None)
  Receive Date: 20110921
  Receipt Date: 20110914
  Transmission Date: 20111222
  Serious: Yes (Other)
  Sender: FDA-Public Use
  Company Number: CHPA2011US12650

PATIENT
  Age: 84 Year
  Sex: Female

DRUGS (2)
  1. PERDIEM OVERNIGHT RELIEF PILLS [Suspect]
     Indication: CONSTIPATION
     Dosage: 3 DF, QD
     Route: 048
  2. STOOL SOFTENER [Concomitant]
     Dosage: 2 DF, UNK
     Route: 048

REACTIONS (2)
  - INCORRECT DRUG ADMINISTRATION DURATION [None]
  - DRUG DEPENDENCE [None]
